FAERS Safety Report 8430164-4 (Version None)
Quarter: 2012Q2

REPORT INFORMATION
  Report Type: 
  Country: None (occurrence: None)
  Receive Date: 20120612
  Receipt Date: 20120528
  Transmission Date: 20120825
  Serious: Yes (Other)
  Sender: FDA-Public Use
  Company Number: JP-ROCHE-752953

PATIENT
  Age: 65 Year
  Sex: Male

DRUGS (2)
  1. AVASTIN [Suspect]
     Indication: OCULAR ISCHAEMIC SYNDROME
     Route: 050
  2. AVASTIN [Suspect]
     Indication: GLAUCOMA

REACTIONS (1)
  - RETINAL ARTERY OCCLUSION [None]
